FAERS Safety Report 6822745-6 (Version None)
Quarter: 2010Q3

REPORT INFORMATION
  Report Type: 
  Country: None (occurrence: None)
  Receive Date: 20100708
  Receipt Date: 20100701
  Transmission Date: 20110219
  Serious: Yes (Death, Hospitalization)
  Sender: FDA-Public Use
  Company Number: JP-ROCHE-597747

PATIENT
  Sex: Female
  Weight: 56 kg

DRUGS (17)
  1. TOCILIZUMAB [Suspect]
     Indication: RHEUMATOID ARTHRITIS
     Route: 041
     Dates: start: 20080910, end: 20080910
  2. TOCILIZUMAB [Suspect]
     Route: 041
     Dates: start: 20081008, end: 20081008
  3. TOCILIZUMAB [Suspect]
     Route: 041
     Dates: start: 20081218, end: 20081218
  4. TOCILIZUMAB [Suspect]
     Route: 041
     Dates: start: 20090115, end: 20090115
  5. TOCILIZUMAB [Suspect]
     Route: 041
     Dates: start: 20090220, end: 20090220
  6. TOCILIZUMAB [Suspect]
     Dosage: ACTION TAKEN: DISCONTINUED
     Route: 041
     Dates: start: 20090317, end: 20090317
  7. PREDONINE [Suspect]
     Indication: RHEUMATOID ARTHRITIS
     Route: 048
  8. RIMATIL [Concomitant]
     Route: 048
  9. MAGMITT [Concomitant]
     Route: 048
     Dates: end: 20090909
  10. HERBESSER R [Concomitant]
     Dosage: FORM: SUSTAINED RELEASE CAPSULE
     Route: 048
     Dates: end: 20090909
  11. MEVALOTIN [Concomitant]
     Route: 048
     Dates: end: 20090909
  12. BLOPRESS [Concomitant]
     Route: 048
     Dates: end: 20090909
  13. ASPIRIN [Concomitant]
     Dosage: FORM: ENTERIC COATING DRUG
     Route: 048
     Dates: end: 20090909
  14. GASTER D [Concomitant]
     Route: 048
     Dates: end: 20090909
  15. ONEALFA [Concomitant]
     Route: 048
     Dates: end: 20090909
  16. ALENDRONATE SODIUM [Concomitant]
     Dosage: DRUG REPORTED AS FOSAMAC 35MG
     Route: 048
     Dates: end: 20090909
  17. HYPEN [Concomitant]
     Route: 048
     Dates: end: 20090909

REACTIONS (3)
  - ABSCESS LIMB [None]
  - HERPES ZOSTER [None]
  - PNEUMONIA [None]
